FAERS Safety Report 5978826-2 (Version None)
Quarter: 2008Q4

REPORT INFORMATION
  Report Type: 
  Country: None (occurrence: None)
  Receive Date: 20081204
  Receipt Date: 20081201
  Transmission Date: 20090506
  Serious: Yes (Death)
  Sender: FDA-Public Use
  Company Number: PHHY2008CA30025

PATIENT
  Sex: Male

DRUGS (4)
  1. CLOZARIL [Suspect]
     Indication: SCHIZOPHRENIA
     Dosage: UNK
     Dates: start: 20080213
  2. HALOPERIDOL [Concomitant]
  3. REMERON [Concomitant]
  4. LAMOTRIGINE [Concomitant]

REACTIONS (1)
  - DEATH [None]
